FAERS Safety Report 7949175-8 (Version None)
Quarter: 2011Q4

REPORT INFORMATION
  Report Type: 
  Country: None (occurrence: None)
  Receive Date: 20111129
  Receipt Date: 20111129
  Transmission Date: 20120403
  Serious: No
  Sender: FDA-Public Use
  Company Number: None

PATIENT
  Sex: Female

DRUGS (1)
  1. XELODA [Suspect]
     Dosage: XELODA 500MG TABLET TAKE 3 TABLETS BY MOUTH TWICE A DAY FOR ONE WEEK ON, ONE WEEK OFF
     Route: 048

REACTIONS (1)
  - HYPERSENSITIVITY [None]
